FAERS Safety Report 21129820 (Version 2)
Quarter: 2022Q3

REPORT INFORMATION
  Report Type: Spontaneous
  Country: US (occurrence: US)
  Receive Date: 20220726
  Receipt Date: 20220815
  Transmission Date: 20221027
  Serious: No
  Sender: FDA-Public Use
  Company Number: US-BRISTOL-MYERS SQUIBB COMPANY-2022-079361

PATIENT
  Age: 66 Year
  Sex: Male

DRUGS (2)
  1. ELIQUIS [Suspect]
     Active Substance: APIXABAN
     Indication: Cerebrovascular accident prophylaxis
     Route: 048
     Dates: start: 2022
  2. ELIQUIS [Suspect]
     Active Substance: APIXABAN
     Dosage: CUTS THE 5 MG TABLETS IN HALF
     Route: 048
     Dates: start: 2022

REACTIONS (4)
  - Dizziness [Recovered/Resolved]
  - Nausea [Recovered/Resolved]
  - Intentional product use issue [Unknown]
  - Cough [Unknown]

NARRATIVE: CASE EVENT DATE: 20220101
